FAERS Safety Report 24718446 (Version 3)
Quarter: 2025Q4

REPORT INFORMATION
  Report Type: Report from Study
  Country: US (occurrence: US)
  Receive Date: 20241210
  Receipt Date: 20251111
  Transmission Date: 20260117
  Serious: Yes (Other)
  Sender: MYLAN
  Company Number: US-MYLANLABS-2024M1110036

PATIENT

DRUGS (4)
  1. PHENTOLAMINE [Suspect]
     Active Substance: PHENTOLAMINE
     Indication: Product used for unknown indication
     Dosage: UNK
  2. PHENTOLAMINE [Suspect]
     Active Substance: PHENTOLAMINE
     Dosage: UNK
     Route: 047
  3. PHENTOLAMINE [Suspect]
     Active Substance: PHENTOLAMINE
     Dosage: UNK
     Route: 047
  4. PHENTOLAMINE [Suspect]
     Active Substance: PHENTOLAMINE
     Dosage: UNK

REACTIONS (5)
  - Punctate keratitis [Not Recovered/Not Resolved]
  - Nephrolithiasis [Not Recovered/Not Resolved]
  - Urinary tract infection [Recovered/Resolved]
  - Seasonal allergy [Not Recovered/Not Resolved]
  - Eye pruritus [Not Recovered/Not Resolved]

NARRATIVE: CASE EVENT DATE: 20241113
